FAERS Safety Report 7018291-X (Version None)
Quarter: 2010Q3

REPORT INFORMATION
  Report Type: 
  Country: None (occurrence: None)
  Receive Date: 20100928
  Receipt Date: 20100917
  Transmission Date: 20110219
  Serious: Yes (Hospitalization)
  Sender: FDA-Public Use
  Company Number: FR-KINGPHARMUSA00001-K201001169

PATIENT
  Age: 68 Year
  Sex: Female

DRUGS (6)
  1. ALTACE [Suspect]
     Dosage: 5 MG, SINGLE
     Route: 048
     Dates: start: 20100801, end: 20100801
  2. HYDROCHLOROTHIAZIDE [Suspect]
     Dosage: 25 MG, SINGLE
     Route: 048
     Dates: start: 20100801, end: 20100801
  3. LANSOPRAZOLE [Suspect]
     Dosage: 2 U, SINGLE
     Route: 048
     Dates: start: 20100801, end: 20100801
  4. AMIODARONE HCL [Concomitant]
  5. ASPIRIN [Concomitant]
     Dosage: 500 MG, QD
  6. SEQUACOR [Concomitant]

REACTIONS (2)
  - DIARRHOEA [None]
  - DYSENTERY [None]
